FAERS Safety Report 19352408 (Version 1)
Quarter: 2021Q2

REPORT INFORMATION
  Report Type: Spontaneous
  Country: JP (occurrence: JP)
  Receive Date: 20210531
  Receipt Date: 20210531
  Transmission Date: 20210717
  Serious: Yes (Other)
  Sender: FDA-Public Use
  Company Number: JP-SUN PHARMACEUTICAL INDUSTRIES LTD-2021RR-298729

PATIENT
  Age: 38 Year
  Sex: Female

DRUGS (11)
  1. ETOPOSIDE. [Suspect]
     Active Substance: ETOPOSIDE
     Indication: METASTATIC CHORIOCARCINOMA
     Dosage: UNK
     Route: 065
  2. ACTINOMYCIN D [Suspect]
     Active Substance: DACTINOMYCIN
     Indication: METASTATIC CHORIOCARCINOMA
     Dosage: UNK
     Route: 065
  3. PEGFILGRASTIM [Concomitant]
     Active Substance: PEGFILGRASTIM
     Indication: METASTATIC CHORIOCARCINOMA
     Dosage: UNK
     Route: 065
  4. BLEOMYCIN [Suspect]
     Active Substance: BLEOMYCIN SULFATE
     Indication: METASTATIC CHORIOCARCINOMA
     Dosage: UNK
     Route: 065
  5. CYCLOPHPSPHAMIDE [Suspect]
     Active Substance: CYCLOPHOSPHAMIDE
     Indication: METASTATIC CHORIOCARCINOMA
     Dosage: UNK
     Route: 065
  6. IFOSFAMIDE. [Suspect]
     Active Substance: IFOSFAMIDE
     Indication: METASTATIC CHORIOCARCINOMA
     Dosage: UNK
     Route: 065
  7. VINCRISTINE [Suspect]
     Active Substance: VINCRISTINE
     Indication: METASTATIC CHORIOCARCINOMA
     Dosage: UNK
     Route: 065
  8. METHOTREXATE. [Suspect]
     Active Substance: METHOTREXATE
     Indication: METASTATIC CHORIOCARCINOMA
     Dosage: UNK
     Route: 065
  9. CISPLATIN. [Suspect]
     Active Substance: CISPLATIN
     Indication: METASTATIC CHORIOCARCINOMA
     Dosage: UNK
     Route: 065
  10. PACLITAXEL. [Suspect]
     Active Substance: PACLITAXEL
     Indication: METASTATIC CHORIOCARCINOMA
  11. FLUOROURACIL. [Suspect]
     Active Substance: FLUOROURACIL
     Indication: METASTATIC CHORIOCARCINOMA
     Dosage: UNK
     Route: 065

REACTIONS (4)
  - Disease progression [Unknown]
  - Therapeutic product effect incomplete [Unknown]
  - Drug ineffective [Unknown]
  - Myelosuppression [Unknown]
